FAERS Safety Report 24062219 (Version 3)
Quarter: 2024Q4

REPORT INFORMATION
  Report Type: Report from Study
  Country: US (occurrence: US)
  Receive Date: 20240708
  Receipt Date: 20241118
  Transmission Date: 20250115
  Serious: Yes (Death)
  Sender: DAIICHI
  Company Number: US-DSJP-DSU-2024-104309

PATIENT
  Sex: Male

DRUGS (3)
  1. ENHERTU [Suspect]
     Active Substance: FAM-TRASTUZUMAB DERUXTECAN-NXKI
     Indication: Gallbladder cancer
     Dosage: 473.6 MG
     Route: 042
     Dates: start: 20231020, end: 20231020
  2. ENHERTU [Suspect]
     Active Substance: FAM-TRASTUZUMAB DERUXTECAN-NXKI
     Dosage: 467.2 MG, ONCE EVERY 3 WK
     Route: 042
     Dates: start: 20231024, end: 20231024
  3. ENHERTU [Suspect]
     Active Substance: FAM-TRASTUZUMAB DERUXTECAN-NXKI
     Dosage: 473.6 MG, ONCE EVERY 3 WK
     Route: 042
     Dates: start: 20240530, end: 20240530

REACTIONS (6)
  - Death [Fatal]
  - Weight decreased [Unknown]
  - Weight increased [Unknown]
  - Finger amputation [Unknown]
  - Therapy change [Not Recovered/Not Resolved]
  - Off label use [Not Recovered/Not Resolved]

NARRATIVE: CASE EVENT DATE: 20230101
